FAERS Safety Report 17599952 (Version 2)
Quarter: 2020Q2

REPORT INFORMATION
  Report Type: Report from Study
  Country: GB (occurrence: GB)
  Receive Date: 20200330
  Receipt Date: 20200409
  Transmission Date: 20200713
  Serious: Yes (Other)
  Sender: FDA-Public Use
  Company Number: GB-PFIZER INC-2020127220

PATIENT
  Age: 56 Year
  Sex: Female

DRUGS (4)
  1. FLUOXETINE [Suspect]
     Active Substance: FLUOXETINE HYDROCHLORIDE
     Dosage: UNK
  2. BRABIO [Suspect]
     Active Substance: GLATIRAMER ACETATE
     Indication: MULTIPLE SCLEROSIS RELAPSE
     Dosage: 20 MG, 1X/DAY
     Route: 058
  3. GABAPENTIN. [Suspect]
     Active Substance: GABAPENTIN
     Dosage: UNK
  4. BRABIO [Suspect]
     Active Substance: GLATIRAMER ACETATE
     Dosage: 20 MG, 1X/DAY
     Route: 058
     Dates: start: 20191223, end: 20200223

REACTIONS (7)
  - Oral pain [Not Recovered/Not Resolved]
  - Dyspnoea [Unknown]
  - Product substitution issue [Unknown]
  - Multiple sclerosis [Unknown]
  - Injection site pruritus [Not Recovered/Not Resolved]
  - Mouth ulceration [Not Recovered/Not Resolved]
  - Pain in extremity [Not Recovered/Not Resolved]

NARRATIVE: CASE EVENT DATE: 20200223
